FAERS Safety Report 8440751-5 (Version None)
Quarter: 2012Q2

REPORT INFORMATION
  Report Type: 
  Country: None (occurrence: None)
  Receive Date: 20120615
  Receipt Date: 20120218
  Transmission Date: 20120825
  Serious: No
  Sender: FDA-Public Use
  Company Number: US-NOVEN-ALL1-2009-00600

PATIENT

DRUGS (1)
  1. DAYTRANA [Suspect]
     Dosage: 15 MG, 1X/DAY:QD
     Route: 062
     Dates: start: 20080227, end: 20080228

REACTIONS (5)
  - PSYCHOMOTOR HYPERACTIVITY [None]
  - APPLICATION SITE RASH [None]
  - DRUG EFFECT INCREASED [None]
  - APPLICATION SITE BURN [None]
  - EMOTIONAL DISORDER [None]
